FAERS Safety Report 18398079 (Version 1)
Quarter: 2020Q4

REPORT INFORMATION
  Report Type: Spontaneous
  Country: US (occurrence: US)
  Receive Date: 20201019
  Receipt Date: 20201019
  Transmission Date: 20210114
  Serious: No
  Sender: FDA-Public Use
  Company Number: None

PATIENT
  Age: 67 Year
  Sex: Female

DRUGS (32)
  1. ONDANSETRON [Concomitant]
     Active Substance: ONDANSETRON
  2. PILOCARPINE. [Concomitant]
     Active Substance: PILOCARPINE
  3. PRAMIPEXOLE. [Concomitant]
     Active Substance: PRAMIPEXOLE
  4. TACROLIMUS. [Concomitant]
     Active Substance: TACROLIMUS
  5. VITAMIN D [Concomitant]
     Active Substance: VITAMIN D NOS
  6. ATROPINE OP [Concomitant]
  7. FUROSEMIDE. [Concomitant]
     Active Substance: FUROSEMIDE
  8. LEVOTHYROXIN [Concomitant]
     Active Substance: LEVOTHYROXINE
  9. PAROXETINE. [Concomitant]
     Active Substance: PAROXETINE
  10. PREDNISOLONE. [Concomitant]
     Active Substance: PREDNISOLONE
  11. PREDNISONE. [Concomitant]
     Active Substance: PREDNISONE
  12. BACITRACIN. [Concomitant]
     Active Substance: BACITRACIN
  13. GABAPENTIN. [Concomitant]
     Active Substance: GABAPENTIN
  14. METHOCARBAM [Concomitant]
     Active Substance: METHOCARBAMOL
  15. MONTELUKAST [Concomitant]
     Active Substance: MONTELUKAST SODIUM
  16. SMZ/TMP DS [Concomitant]
     Active Substance: SULFAMETHOXAZOLE\TRIMETHOPRIM
  17. TEMAZEPAM. [Concomitant]
     Active Substance: TEMAZEPAM
  18. AMIODARONE [Concomitant]
     Active Substance: AMIODARONE
  19. CYANOCOBALAM [Concomitant]
     Active Substance: CYANOCOBALAMIN
  20. FLUTICASONE. [Concomitant]
     Active Substance: FLUTICASONE
  21. JANUMET [Concomitant]
     Active Substance: METFORMIN HYDROCHLORIDE\SITAGLIPTIN PHOSPHATE
  22. RESTASIS [Concomitant]
     Active Substance: CYCLOSPORINE
  23. SPIRONOLACT [Concomitant]
     Active Substance: SPIRONOLACTONE
  24. CARVEDILOL. [Concomitant]
     Active Substance: CARVEDILOL
  25. PRAVASTATIN. [Concomitant]
     Active Substance: PRAVASTATIN
  26. FORTEO [Suspect]
     Active Substance: TERIPARATIDE
     Indication: SENILE OSTEOPOROSIS
     Route: 058
     Dates: start: 20190515
  27. CEFDINIR. [Concomitant]
     Active Substance: CEFDINIR
  28. LISINOPRIL. [Concomitant]
     Active Substance: LISINOPRIL
  29. MOXIFLOXACIN. [Concomitant]
     Active Substance: MOXIFLOXACIN
  30. MYCOPHENOLIC [Concomitant]
     Active Substance: MYCOPHENOLIC ACID
  31. OMEPRAZOLE. [Concomitant]
     Active Substance: OMEPRAZOLE
  32. GLIMEPIRIDE. [Concomitant]
     Active Substance: GLIMEPIRIDE

REACTIONS (3)
  - Ankle fracture [None]
  - Myocardial infarction [None]
  - Therapy interrupted [None]

NARRATIVE: CASE EVENT DATE: 20201015
